FAERS Safety Report 11197755 (Version 1)
Quarter: 2015Q2

REPORT INFORMATION
  Report Type: Spontaneous
  Country: US (occurrence: US)
  Receive Date: 20150617
  Receipt Date: 20150617
  Transmission Date: 20150821
  Serious: No
  Sender: FDA-Public Use
  Company Number: US-TAKEDA-2014TUS004955

PATIENT
  Sex: Female
  Weight: 54 kg

DRUGS (1)
  1. ULORIC [Suspect]
     Active Substance: FEBUXOSTAT
     Indication: GOUT
     Dosage: 40 MG, QD
     Route: 048
     Dates: start: 20140617

REACTIONS (4)
  - Feeling abnormal [Recovered/Resolved]
  - Product physical issue [Unknown]
  - Somnolence [Unknown]
  - Dizziness [Unknown]
